FAERS Safety Report 8611013-8 (Version None)
Quarter: 2012Q3

REPORT INFORMATION
  Report Type: 
  Country: None (occurrence: None)
  Receive Date: 20120822
  Receipt Date: 20120817
  Transmission Date: 20120928
  Serious: Yes (Other)
  Sender: FDA-Public Use
  Company Number: US-PFIZER INC-2012202363

PATIENT
  Age: 47 Year
  Sex: Male
  Weight: 189.57 kg

DRUGS (17)
  1. BYETTA [Concomitant]
     Dosage: 10 UG, 2X/DAY
     Route: 058
  2. HYDROCODONE BITARTRATE + ACETAMINOPHEN [Concomitant]
     Indication: PAIN
     Dosage: 5-500 MG, 1 TABLET 3 TIMES DAILY AS NEEDED
     Route: 048
  3. LASIX [Concomitant]
     Dosage: 80 MG, 1X/DAY AS DIRECTED
     Route: 048
  4. LEVEMIR [Concomitant]
     Dosage: 100 UNITS/ML
     Route: 058
  5. ALBUTEROL [Concomitant]
     Dosage: UNK
  6. EFFIENT [Concomitant]
     Dosage: 10 MG, 1X/DAY
     Route: 048
  7. LIPITOR [Suspect]
     Dosage: 20 MG, 1X/DAY
     Route: 048
  8. LOVAZA [Concomitant]
     Dosage: 1000 MG, 1X/DAY
     Route: 048
  9. TRIAMTERENE AND HYDROCHLOROTHIAZIDE [Concomitant]
     Dosage: 25 - 37.5 MG, 1X/DAY
     Route: 048
  10. ASPIRIN [Concomitant]
     Dosage: 81 MG, 1X/DAY
     Route: 048
  11. METOPROLOL TARTRATE [Concomitant]
     Dosage: 25 MG, 2X/DAY
     Route: 048
  12. NOVOLOG [Concomitant]
     Dosage: 10 IU, 2X/DAY
     Route: 058
  13. PROTONIX [Suspect]
     Dosage: 40 MG ORAL PACKET, 1 TABLET DAILY
     Route: 048
  14. VENTOLIN HFA [Concomitant]
     Dosage: 1 PUFF EVERY 4 HOURS AS NEEDED
  15. CO-Q-10 [Concomitant]
     Dosage: 50 MG, UNK
     Route: 048
  16. FOLIC ACID [Concomitant]
     Dosage: 1 MG, 2 TABLETS DAILY
     Route: 048
  17. NITROGLYCERIN [Concomitant]
     Indication: CHEST PAIN
     Dosage: 0.4 MG/SPRAY, USE ONE SPRAY UNDER THE TONGUE AS NEEDED

REACTIONS (1)
  - OBESITY [None]
